FAERS Safety Report 5857793-6 (Version None)
Quarter: 2008Q3

REPORT INFORMATION
  Report Type: 
  Country: None (occurrence: None)
  Receive Date: 20080826
  Receipt Date: 20080813
  Transmission Date: 20090109
  Serious: Yes (Life-Threatening)
  Sender: FDA-Public Use
  Company Number: US-RANBAXY-2008RR-17381

PATIENT

DRUGS (19)
  1. CITALOPRAM 40MG TABLETS [Suspect]
     Indication: DEPRESSION
     Dosage: 40 MG, QD
  2. FLUCONAZOLE [Suspect]
     Dosage: 100 MG, QD
  3. CYCLOPHOSPHAMIDE [Concomitant]
     Indication: LYMPHOMA
  4. DOXORUBICIN HCL [Concomitant]
     Indication: LYMPHOMA
  5. VINCRISTINE [Concomitant]
     Indication: LYMPHOMA
  6. METHOTREXATE SODIUM [Concomitant]
     Indication: LYMPHOMA
  7. CYTARABINE [Concomitant]
     Indication: LYMPHOMA
  8. IFOSFAMIDE [Concomitant]
     Indication: LYMPHOMA
  9. ETOPOSIDE [Concomitant]
     Indication: LYMPHOMA
  10. METHYLENE BLUE [Concomitant]
     Dosage: 50 MG, TID
  11. OLANZAPINE [Concomitant]
     Dosage: 2.5 MG, Q1H
  12. CLONAZEPAM [Concomitant]
     Dosage: 0.5 MG, BID
  13. LEVOFLOXACIN [Concomitant]
     Dosage: 500 MG, QD
  14. METOPROLOL SUCCINATE [Concomitant]
     Dosage: 100 MG, QD
  15. ACYCLOVIR [Concomitant]
     Dosage: 200 MG, BID
  16. VANCOMYCIN HYDROCHLORIDE [Concomitant]
     Dosage: 1 G, BID
  17. AMLODIPINE [Concomitant]
     Dosage: 10 MG, QD
  18. VALSARTAN [Concomitant]
     Dosage: 160 MG, QD
  19. PANTOPRAZOLE [Concomitant]
     Dosage: 40 MG, QD

REACTIONS (2)
  - DRUG INTERACTION [None]
  - SEROTONIN SYNDROME [None]
